FAERS Safety Report 14584817 (Version 2)
Quarter: 2018Q1

REPORT INFORMATION
  Report Type: Report from Study
  Country: GB (occurrence: GB)
  Receive Date: 20180301
  Receipt Date: 20180309
  Transmission Date: 20180509
  Serious: Yes (Death, Life-Threatening, Hospitalization)
  Sender: FDA-Public Use
  Company Number: GB-ROCHE-2075921

PATIENT
  Age: 74 Year
  Sex: Female
  Weight: 60 kg

DRUGS (1)
  1. TENECTEPLASE [Suspect]
     Active Substance: TENECTEPLASE
     Indication: ISCHAEMIC STROKE
     Route: 042
     Dates: start: 20180212

REACTIONS (2)
  - Aortic dissection [Unknown]
  - Nervous system disorder [Fatal]

NARRATIVE: CASE EVENT DATE: 20180212
